FAERS Safety Report 9778883 (Version 1)
Quarter: 2013Q4

REPORT INFORMATION
  Report Type: Spontaneous
  Country: US (occurrence: US)
  Receive Date: 20131223
  Receipt Date: 20131223
  Transmission Date: 20140711
  Serious: Yes (Life-Threatening)
  Sender: FDA-Public Use
  Company Number: US-JHP PHARMACEUTICALS, LLC-JHP201300768

PATIENT
  Age: 25 Year
  Sex: Male

DRUGS (2)
  1. KETALAR [Suspect]
     Indication: ANAESTHESIA PROCEDURE
     Dosage: 2 MG/KG, UNK
  2. GOLYTELY [Concomitant]

REACTIONS (1)
  - Cardiac arrest [Recovered/Resolved]
